FAERS Safety Report 20473976 (Version 7)
Quarter: 2023Q2

REPORT INFORMATION
  Report Type: Other
  Country: PT (occurrence: None)
  Receive Date: 20220215
  Receipt Date: 20230526
  Transmission Date: 20230722
  Serious: No
  Sender: FDA-Public Use
  Company Number: PT-ROCHE-3025733

PATIENT
  Age: 49 Year
  Sex: Female

DRUGS (24)
  1. OCRELIZUMAB [Suspect]
     Active Substance: OCRELIZUMAB
     Indication: Relapsing-remitting multiple sclerosis
     Route: 042
     Dates: start: 20200917, end: 20201001
  2. OCRELIZUMAB [Suspect]
     Active Substance: OCRELIZUMAB
     Dosage: SUBSEQUENT DOSES OF OCRELIZUMAB: 30/AUG/2021, 17/FEB/2022, 12/AUG/2022, 10/FEB/2023
     Route: 042
     Dates: start: 20210311
  3. FLUOXETINE [Concomitant]
     Active Substance: FLUOXETINE HYDROCHLORIDE
     Route: 048
     Dates: start: 20180605
  4. CLONAZEPAM [Concomitant]
     Active Substance: CLONAZEPAM
     Route: 048
     Dates: start: 20181220
  5. BACLOFEN [Concomitant]
     Active Substance: BACLOFEN
     Route: 048
     Dates: start: 20190521, end: 20230202
  6. BACLOFEN [Concomitant]
     Active Substance: BACLOFEN
     Route: 048
     Dates: start: 20230202
  7. FLUTICASONE FUROATE\VILANTEROL TRIFENATATE [Concomitant]
     Active Substance: FLUTICASONE FUROATE\VILANTEROL TRIFENATATE
     Route: 055
     Dates: start: 20200528
  8. MODAFINIL [Concomitant]
     Active Substance: MODAFINIL
     Route: 048
     Dates: start: 20200623
  9. ROSUVASTATIN [Concomitant]
     Active Substance: ROSUVASTATIN
     Route: 048
     Dates: start: 20200824
  10. DULAGLUTIDE [Concomitant]
     Active Substance: DULAGLUTIDE
     Route: 058
     Dates: start: 20210114
  11. METFORMIN [Concomitant]
     Active Substance: METFORMIN HYDROCHLORIDE
     Route: 048
     Dates: start: 20210114
  12. ACETAMINOPHEN [Concomitant]
     Active Substance: ACETAMINOPHEN
     Route: 048
     Dates: start: 20220120, end: 20220228
  13. ACETAMINOPHEN [Concomitant]
     Active Substance: ACETAMINOPHEN
     Route: 048
     Dates: start: 20220812, end: 20220812
  14. ACETAMINOPHEN [Concomitant]
     Active Substance: ACETAMINOPHEN
     Route: 048
     Dates: start: 20220217, end: 20220217
  15. ACETAMINOPHEN [Concomitant]
     Active Substance: ACETAMINOPHEN
     Route: 048
     Dates: start: 20230210, end: 20230210
  16. CLEMASTINE [Concomitant]
     Active Substance: CLEMASTINE
     Route: 042
     Dates: start: 20220812, end: 20220812
  17. CLEMASTINE [Concomitant]
     Active Substance: CLEMASTINE
     Route: 042
     Dates: start: 20220217, end: 20220217
  18. CLEMASTINE [Concomitant]
     Active Substance: CLEMASTINE
     Route: 042
     Dates: start: 20230210, end: 20230210
  19. PREDNISOLONE [Concomitant]
     Active Substance: PREDNISOLONE
     Route: 042
     Dates: start: 20220217, end: 20220217
  20. PREDNISOLONE [Concomitant]
     Active Substance: PREDNISOLONE
     Route: 042
     Dates: start: 20220812, end: 20220812
  21. PREDNISOLONE [Concomitant]
     Active Substance: PREDNISOLONE
     Route: 042
     Dates: start: 20230210, end: 20230210
  22. METHYLPREDNISOLONE [Concomitant]
     Active Substance: METHYLPREDNISOLONE
     Indication: Multiple sclerosis
     Route: 042
     Dates: start: 20230123, end: 20230127
  23. METHYLPREDNISOLONE [Concomitant]
     Active Substance: METHYLPREDNISOLONE
     Route: 042
     Dates: start: 20230123, end: 20230129
  24. ESCITALOPRAM [Concomitant]
     Active Substance: ESCITALOPRAM OXALATE
     Route: 048
     Dates: start: 20230202

REACTIONS (2)
  - COVID-19 [Recovered/Resolved]
  - Blood immunoglobulin G decreased [Recovering/Resolving]

NARRATIVE: CASE EVENT DATE: 20220120
